FAERS Safety Report 10031392 (Version 1)
Quarter: 2014Q1

REPORT INFORMATION
  Report Type: Spontaneous
  Country: IN (occurrence: IN)
  Receive Date: 20140324
  Receipt Date: 20140324
  Transmission Date: 20141002
  Serious: Yes (Death)
  Sender: FDA-Public Use
  Company Number: IN-ROCHE-1365040

PATIENT
  Age: 32 Year
  Sex: Female

DRUGS (2)
  1. VESANOID [Suspect]
     Indication: ACUTE PROMYELOCYTIC LEUKAEMIA
     Dosage: INDUCTION DOSE: 45 MG/M2/D PER ORAL IN 2 DIVIDED DOSES
     Route: 048
  2. DAUNORUBICIN [Suspect]
     Indication: ACUTE PROMYELOCYTIC LEUKAEMIA
     Dosage: INDUCTION DOSE: 45 MG/M2/D IV OVER DAYS 1-3
     Route: 065

REACTIONS (2)
  - Acute myeloid leukaemia [Fatal]
  - Leukaemia [Fatal]
